FAERS Safety Report 9203898 (Version 1)
Quarter: 2013Q2

REPORT INFORMATION
  Report Type: Spontaneous
  Country: US (occurrence: US)
  Receive Date: 20130402
  Receipt Date: 20130402
  Transmission Date: 20140414
  Serious: Yes (Hospitalization)
  Sender: FDA-Public Use
  Company Number: US-BAYER-2013-038068

PATIENT
  Age: 26 Year
  Sex: Female

DRUGS (20)
  1. OCELLA [Suspect]
  2. ZARAH [Suspect]
  3. SYNTHROID [Concomitant]
  4. HYDROCODONE/ACETAMINOPHEN [Concomitant]
  5. IBUPROFEN [Concomitant]
  6. CYCLOBENZAPRINE [Concomitant]
  7. TRAZODONE [Concomitant]
  8. SERTRALINE [Concomitant]
  9. ABILIFY [Concomitant]
  10. MIGRANAL [Concomitant]
  11. METOCLOPRAM [Concomitant]
  12. CARAFATE [Concomitant]
  13. PANTOPRAZOLE [Concomitant]
  14. CEPHALEXIN [Concomitant]
  15. BUSPIRONE [Concomitant]
  16. CHLORPROMAZIN [Concomitant]
  17. CLONAZEPAM [Concomitant]
  18. VICODIN [Concomitant]
     Indication: PAIN
  19. ARIPIPRAZOLE [Concomitant]
  20. DALTEPARIN [Concomitant]

REACTIONS (3)
  - Deep vein thrombosis [Recovered/Resolved]
  - Pulmonary embolism [Recovered/Resolved]
  - Pulmonary embolism [None]
